FAERS Safety Report 8858730 (Version 5)
Quarter: 2013Q2

REPORT INFORMATION
  Report Type: Spontaneous
  Country: US (occurrence: US)
  Receive Date: 20121024
  Receipt Date: 20130613
  Transmission Date: 20140414
  Serious: Yes (Hospitalization, Other)
  Sender: FDA-Public Use
  Company Number: US-MERCK-1210USA007178

PATIENT
  Sex: Female
  Weight: 72.11 kg

DRUGS (16)
  1. FOSAMAX [Suspect]
     Indication: OSTEOPOROSIS
     Dosage: 10 MG, UNK
     Route: 048
     Dates: start: 20001118
  2. FOSAMAX [Suspect]
     Dosage: 70 MG, UNK
     Route: 048
     Dates: start: 20001118
  3. DILANTIN [Concomitant]
     Indication: CONVULSION
     Dosage: 100 MG, UNK
     Dates: start: 1964, end: 201202
  4. TEMPRA [Concomitant]
     Indication: CONVULSION
  5. VITAMINS (UNSPECIFIED) [Concomitant]
  6. VITAMIN D (UNSPECIFIED) [Concomitant]
  7. CALCIUM (UNSPECIFIED) [Concomitant]
  8. ALENDRONATE SODIUM [Suspect]
     Indication: OSTEOPOROSIS
     Dosage: 70 MG, QW
     Route: 048
     Dates: start: 2009, end: 201205
  9. LISINOPRIL [Concomitant]
     Indication: HYPERTENSION
     Dosage: 20 MG, UNK
     Dates: start: 20031003, end: 20031102
  10. ATENOLOL [Concomitant]
     Indication: HYPERTENSION
     Dosage: 50 MG, UNK
     Dates: start: 20031103
  11. ALLEGRA [Concomitant]
     Indication: SEASONAL ALLERGY
     Dosage: 60 MG, UNK
     Dates: start: 20020922, end: 20030704
  12. ALLEGRA [Concomitant]
     Dosage: 180 MG, UNK
     Dates: start: 20031006, end: 20050610
  13. NAPROXEN [Concomitant]
     Indication: PAIN
     Dosage: 500 MG, UNK
     Dates: start: 20060724
  14. HYDROCODONE/APAP [Concomitant]
     Indication: PAIN
     Dosage: 5/500MG
     Dates: start: 20001026, end: 20061002
  15. HYDROCODONE BITARTRATE (+) IBUPROFEN [Concomitant]
     Indication: PAIN
     Dosage: UNK
     Dates: start: 20060908, end: 20060926
  16. ACETAMINOPHEN (+) OXYCODONE HYDROCHLORIDE [Concomitant]
     Indication: PAIN
     Dosage: 5-325MG
     Dates: start: 20080314, end: 20080517

REACTIONS (23)
  - Atypical femur fracture [Unknown]
  - Patella fracture [Unknown]
  - Knee arthroplasty [Unknown]
  - Interstitial lung disease [Unknown]
  - Epilepsy [Unknown]
  - Femur fracture [Unknown]
  - Intramedullary rod insertion [Unknown]
  - Acetabulum fracture [Unknown]
  - Open reduction of fracture [Unknown]
  - Spinal osteoarthritis [Unknown]
  - Fall [Unknown]
  - Jaw fracture [Unknown]
  - Fracture [Unknown]
  - Osteoarthritis [Unknown]
  - Thoracic vertebral fracture [Unknown]
  - Incorrect dose administered [Unknown]
  - Rib fracture [Unknown]
  - Sinus disorder [Unknown]
  - Cough [Unknown]
  - Infection [Unknown]
  - Infection [Unknown]
  - Infection [Unknown]
  - Gastrooesophageal reflux disease [Unknown]
